FAERS Safety Report 5301873-0 (Version None)
Quarter: 2007Q2

REPORT INFORMATION
  Report Type: 
  Country: None (occurrence: None)
  Receive Date: 20070419
  Receipt Date: 20070412
  Transmission Date: 20071010
  Serious: Yes (Other)
  Sender: FDA-Public Use
  Company Number: ZA-ROCHE-491531

PATIENT
  Age: 32 Year
  Sex: Female

DRUGS (1)
  1. ROACCUTANE [Suspect]
     Indication: ACNE
     Dosage: FREQUENCY REPORTED AS DAILY.
     Route: 048
     Dates: start: 20070315, end: 20070405

REACTIONS (2)
  - NO ADVERSE EFFECT [None]
  - PREGNANCY [None]
